FAERS Safety Report 5125553-X (Version None)
Quarter: 2006Q4

REPORT INFORMATION
  Report Type: 
  Country: None (occurrence: None)
  Receive Date: 20061006
  Receipt Date: 20060922
  Transmission Date: 20070319
  Serious: Yes (Other)
  Sender: FDA-Public Use
  Company Number: 2006S1008175

PATIENT
  Age: 68 Year
  Sex: Female
  Weight: 86.637 kg

DRUGS (1)
  1. LEVOTHYROXINE SODIUM [Suspect]
     Indication: HYPOTHYROIDISM
     Dosage: 37.5 UG/HR;QD;PO
     Route: 048
     Dates: start: 20060818, end: 20060828

REACTIONS (18)
  - ABDOMINAL PAIN [None]
  - BLOOD THYROID STIMULATING HORMONE INCREASED [None]
  - DEFAECATION URGENCY [None]
  - ERYTHEMA [None]
  - FEELING ABNORMAL [None]
  - HEADACHE [None]
  - HEART RATE DECREASED [None]
  - HYPERTHYROIDISM [None]
  - HYPOTENSION [None]
  - NAUSEA [None]
  - PHARMACEUTICAL PRODUCT COMPLAINT [None]
  - PRURITUS [None]
  - PYREXIA [None]
  - RASH [None]
  - TACHYCARDIA [None]
  - TEMPERATURE INTOLERANCE [None]
  - THROAT TIGHTNESS [None]
  - TREMOR [None]
